FAERS Safety Report 6925596-7 (Version None)
Quarter: 2010Q3

REPORT INFORMATION
  Report Type: 
  Country: None (occurrence: None)
  Receive Date: 20100816
  Receipt Date: 20100811
  Transmission Date: 20110219
  Serious: Yes (Hospitalization)
  Sender: FDA-Public Use
  Company Number: A0875670A

PATIENT
  Sex: Female
  Weight: 50 kg

DRUGS (6)
  1. NIQUITIN 14MG [Suspect]
     Indication: SMOKING CESSATION THERAPY
     Route: 062
     Dates: start: 20100720
  2. NIQUITIN 7MG [Suspect]
     Indication: SMOKING CESSATION THERAPY
     Route: 062
     Dates: start: 20100803
  3. CARBAMAZEPINE [Concomitant]
     Dosage: 6TAB PER DAY
  4. RIVOTRIL [Concomitant]
     Dosage: 2TAB PER DAY
  5. UNKNOWN [Concomitant]
     Dosage: 2TAB PER DAY
  6. AMITRIPTYLINE HYDROCHLORIDE [Concomitant]
     Dosage: 4TAB PER DAY

REACTIONS (2)
  - CONVULSION [None]
  - DRUG DISPENSING ERROR [None]
